FAERS Safety Report 24645921 (Version 6)
Quarter: 2025Q3

REPORT INFORMATION
  Report Type: Spontaneous
  Country: US (occurrence: US)
  Receive Date: 20241121
  Receipt Date: 20250827
  Transmission Date: 20251020
  Serious: No
  Sender: ELI LILLY AND COMPANY
  Company Number: US-ELI_LILLY_AND_COMPANY-US202411013516

PATIENT
  Age: 48 Year
  Sex: Female

DRUGS (3)
  1. VERZENIO [Suspect]
     Active Substance: ABEMACICLIB
     Indication: Breast cancer female
     Dosage: 1 DOSAGE FORM, BID
     Route: 048
     Dates: start: 20241011
  2. VERZENIO [Suspect]
     Active Substance: ABEMACICLIB
     Dosage: 100 MG, BID
     Route: 048
     Dates: start: 20250625
  3. VERZENIO [Suspect]
     Active Substance: ABEMACICLIB
     Dosage: 100 MG, BID
     Route: 048

REACTIONS (15)
  - Taste disorder [Unknown]
  - Limb discomfort [Unknown]
  - Hepatic enzyme increased [Unknown]
  - Product dose omission issue [Unknown]
  - Insomnia [Not Recovered/Not Resolved]
  - Snoring [Unknown]
  - Brain fog [Unknown]
  - Somnolence [Unknown]
  - Headache [Unknown]
  - Diarrhoea [Not Recovered/Not Resolved]
  - Nausea [Unknown]
  - Vomiting [Unknown]
  - Fatigue [Not Recovered/Not Resolved]
  - Decreased appetite [Unknown]
  - Alopecia [Unknown]
